FAERS Safety Report 16338690 (Version 1)
Quarter: 2019Q2

REPORT INFORMATION
  Report Type: Spontaneous
  Country: US (occurrence: US)
  Receive Date: 20190521
  Receipt Date: 20190521
  Transmission Date: 20190711
  Serious: No
  Sender: FDA-Public Use
  Company Number: US-BAUSCH-BL-2019-014120

PATIENT
  Sex: Female

DRUGS (2)
  1. VENLAFAXINE HYDROCHLORIDE EXTENDED-RELEASE [Suspect]
     Active Substance: VENLAFAXINE HYDROCHLORIDE
     Indication: ANXIETY
  2. VENLAFAXINE HYDROCHLORIDE EXTENDED-RELEASE [Suspect]
     Active Substance: VENLAFAXINE HYDROCHLORIDE
     Indication: ANGER
     Route: 065
     Dates: start: 2004

REACTIONS (3)
  - Ear discomfort [Not Recovered/Not Resolved]
  - Tinnitus [Not Recovered/Not Resolved]
  - Anger [Not Recovered/Not Resolved]
